FAERS Safety Report 6207102-8 (Version None)
Quarter: 2009Q2

REPORT INFORMATION
  Report Type: 
  Country: None (occurrence: None)
  Receive Date: 20090528
  Receipt Date: 20090520
  Transmission Date: 20091009
  Serious: Yes (Death, Other)
  Sender: FDA-Public Use
  Company Number: US-ELI_LILLY_AND_COMPANY-US200905004309

PATIENT
  Age: 67 Year
  Sex: Male

DRUGS (3)
  1. ZYPREXA [Suspect]
     Indication: PSYCHOTIC DISORDER
     Dosage: 30 MG, UNK
  2. PROZAC [Suspect]
  3. TRAZODONE HCL [Concomitant]

REACTIONS (3)
  - DEATH [None]
  - OVERDOSE [None]
  - PNEUMONIA [None]
